FAERS Safety Report 11627020 (Version 1)
Quarter: 2015Q4

REPORT INFORMATION
  Report Type: Report from Study
  Country: US (occurrence: US)
  Receive Date: 20151013
  Receipt Date: 20151013
  Transmission Date: 20160304
  Serious: Yes (Other)
  Sender: FDA-Public Use
  Company Number: US-ABBVIE-15P-163-1475617-00

PATIENT

DRUGS (1)
  1. LUPRON DEPOT [Suspect]
     Active Substance: LEUPROLIDE ACETATE
     Indication: PRODUCT USED FOR UNKNOWN INDICATION
     Route: 065

REACTIONS (11)
  - Alopecia [Unknown]
  - Unevaluable event [Unknown]
  - Rash macular [Unknown]
  - Liver disorder [Unknown]
  - Headache [Unknown]
  - Renal disorder [Unknown]
  - Menorrhagia [Unknown]
  - Hot flush [Unknown]
  - Night sweats [Unknown]
  - Tooth loss [Unknown]
  - Uterine cancer [Unknown]
